FAERS Safety Report 25221107 (Version 1)
Quarter: 2025Q2

REPORT INFORMATION
  Report Type: Spontaneous
  Country: US (occurrence: None)
  Receive Date: 20250421
  Receipt Date: 20250421
  Transmission Date: 20250717
  Serious: Yes (Death)
  Sender: FDA-CTU
  Company Number: None

PATIENT
  Sex: Male

DRUGS (7)
  1. XOLAIR [Suspect]
     Active Substance: OMALIZUMAB
     Indication: Asthma
     Route: 058
     Dates: start: 20250205
  2. FISH OIL [Concomitant]
     Active Substance: FISH OIL
  3. HYALURONIDAS POW BOVINE [Concomitant]
  4. PREDNISONE [Concomitant]
     Active Substance: PREDNISONE
  5. STERILE WATER [Concomitant]
     Active Substance: WATER
  6. VITAMIN B12 [Concomitant]
     Active Substance: CYANOCOBALAMIN
  7. WEGCOVY [Concomitant]

REACTIONS (1)
  - Death [None]
